FAERS Safety Report 19649105 (Version 1)
Quarter: 2021Q3

REPORT INFORMATION
  Report Type: Spontaneous
  Country: US (occurrence: US)
  Receive Date: 20210803
  Receipt Date: 20210803
  Transmission Date: 20211014
  Serious: No
  Sender: FDA-Public Use
  Company Number: US-DEXPHARM-20210138

PATIENT
  Age: 58 Year
  Sex: Female
  Weight: 99.77 kg

DRUGS (4)
  1. LANSOPRAZOLE 15 MG ORODISPERSIBLE TABLET [Suspect]
     Active Substance: LANSOPRAZOLE
     Indication: DYSPEPSIA
     Dosage: A SINGLE LANSOPRAZOLE 15 MG ORODISPERSIBLE STRAWBERRY TABLET
     Route: 050
     Dates: start: 202012, end: 202012
  2. LANSOPRAZOLE 15 MG ORODISPERSIBLE TABLET [Suspect]
     Active Substance: LANSOPRAZOLE
     Indication: DYSPEPSIA
     Dosage: ONE TABLET ONCE
     Route: 050
     Dates: start: 202101, end: 202101
  3. METOPROLOL. [Concomitant]
     Active Substance: METOPROLOL
     Indication: BLOOD PRESSURE ABNORMAL
     Dosage: UNK
  4. LOSARTAN. [Concomitant]
     Active Substance: LOSARTAN
     Indication: BLOOD PRESSURE ABNORMAL
     Dosage: UNK

REACTIONS (1)
  - Condition aggravated [Recovered/Resolved]

NARRATIVE: CASE EVENT DATE: 202012
